FAERS Safety Report 15021563 (Version 5)
Quarter: 2018Q4

REPORT INFORMATION
  Report Type: Spontaneous
  Country: ES (occurrence: ES)
  Receive Date: 20180618
  Receipt Date: 20181208
  Transmission Date: 20190204
  Serious: Yes (Hospitalization, Other)
  Sender: FDA-Public Use
  Company Number: ES-ROCHE-2140243

PATIENT
  Age: 67 Year
  Sex: Male

DRUGS (10)
  1. BIPERIDEN [Interacting]
     Active Substance: BIPERIDEN
     Indication: SCHIZOPHRENIA
     Dosage: 4 MG SLOW RELEASE, 1 TABLET EVERY 24 HOURS
     Route: 065
  2. BIPERIDEN [Interacting]
     Active Substance: BIPERIDEN
     Dosage: 1 VIAL OF 5 MG, EVERY 4 WEEKS ,FOR 6 YEARS UP TO DATE
     Route: 065
  3. DIAZEPAM. [Suspect]
     Active Substance: DIAZEPAM
     Indication: EXTRAPYRAMIDAL DISORDER
     Route: 065
     Dates: start: 201612
  4. FLUPHENAZINE DECANOATE. [Interacting]
     Active Substance: FLUPHENAZINE DECANOATE
     Indication: SCHIZOPHRENIA
     Dosage: FOR 6 YEARS UP TO DATE (1 VIAL OF 25 MG EVERY 4 WEEKS)
     Route: 065
  5. ATORVASTATIN [Interacting]
     Active Substance: ATORVASTATIN
     Indication: DYSLIPIDAEMIA
     Route: 065
     Dates: start: 201305
  6. DIAZEPAM. [Interacting]
     Active Substance: DIAZEPAM
     Route: 065
  7. QUETIAPINE. [Interacting]
     Active Substance: QUETIAPINE
     Indication: SCHIZOPHRENIA
     Dosage: FOR 6 YEARS UP TO DATE
     Route: 065
  8. QUETIAPINE. [Interacting]
     Active Substance: QUETIAPINE
     Route: 065
  9. BIPERIDEN [Interacting]
     Active Substance: BIPERIDEN
     Indication: EXTRAPYRAMIDAL DISORDER
     Dosage: BE INCREASED FOR 4 DAYS
     Route: 048
     Dates: start: 201612
  10. DIAZEPAM. [Interacting]
     Active Substance: DIAZEPAM
     Dosage: 7.5 MG MORE OF DIAZEPAM WAS ADMINISTERED
     Route: 065

REACTIONS (8)
  - Motor dysfunction [Recovered/Resolved]
  - Rhabdomyolysis [Recovered/Resolved]
  - Drug interaction [Unknown]
  - Toxicity to various agents [Recovered/Resolved]
  - Extrapyramidal disorder [Recovered/Resolved]
  - Myopathy toxic [Recovered/Resolved]
  - Pyrexia [Recovered/Resolved]
  - Fall [Unknown]

NARRATIVE: CASE EVENT DATE: 201612
